FAERS Safety Report 4268040-3 (Version None)
Quarter: 2004Q1

REPORT INFORMATION
  Report Type: 
  Country: None (occurrence: None)
  Receive Date: 20040109
  Receipt Date: 20040109
  Transmission Date: 20041129
  Serious: Yes (Death)
  Sender: FDA-Public Use
  Company Number: None

PATIENT
  Age: 44 Year
  Sex: Male
  Weight: 58 kg

DRUGS (1)
  1. NYQUIL 650 MG/30 ML APAP [Suspect]
     Indication: NASOPHARYNGITIS
     Dosage: 1 BOTTLE DAILY ORAL
     Route: 048
     Dates: start: 20000429, end: 20000504

REACTIONS (4)
  - ACIDOSIS [None]
  - COMA [None]
  - HEPATIC FAILURE [None]
  - HYPOTENSION [None]
